FAERS Safety Report 21066840 (Version 3)
Quarter: 2022Q3

REPORT INFORMATION
  Report Type: Report from Study
  Country: US (occurrence: US)
  Receive Date: 20220712
  Receipt Date: 20220718
  Transmission Date: 20221026
  Serious: Yes (Hospitalization, Other)
  Sender: FDA-Public Use
  Company Number: US-GILEAD-2022-0588209

PATIENT
  Sex: Female

DRUGS (1)
  1. AZTREONAM LYSINE [Suspect]
     Active Substance: AZTREONAM LYSINE
     Indication: Pneumonia pseudomonal
     Dosage: UNK, TID,EVERY OTHER MONTH
     Route: 055

REACTIONS (3)
  - Vascular device infection [Unknown]
  - Immunodeficiency [Recovered/Resolved]
  - Off label use [Not Recovered/Not Resolved]
